FAERS Safety Report 9095822 (Version 3)
Quarter: 2013Q1

REPORT INFORMATION
  Report Type: Report from Study
  Country: BE (occurrence: BE)
  Receive Date: 20130220
  Receipt Date: 20130329
  Transmission Date: 20140127
  Serious: Yes (Hospitalization)
  Sender: FDA-Public Use
  Company Number: BE-PFIZER INC-2013056875

PATIENT
  Age: 60 Year
  Sex: Female

DRUGS (6)
  1. IRINOTECAN HCL [Suspect]
     Indication: COLORECTAL CANCER METASTATIC
     Dosage: 180 MG/M2, ON DAY 1 EVERY 14 DAYS
     Route: 042
     Dates: start: 20121017, end: 20130102
  2. FLUOROURACIL [Suspect]
     Indication: COLORECTAL CANCER METASTATIC
     Dosage: 400 MG/M2, ON DAY ONE EVERY 14 DAYS
     Route: 042
     Dates: start: 20121017, end: 20130102
  3. FLUOROURACIL [Suspect]
     Dosage: 2400 MG/M2, ON DAY ONE AND TWO EVERY 14 DAYS
     Route: 042
     Dates: start: 20121017, end: 20130102
  4. FOLINIC ACID [Suspect]
     Indication: COLORECTAL CANCER METASTATIC
     Dosage: 400 MG/M2, ON DAY ONE EVERY 14 DAYS
     Route: 042
     Dates: start: 20121017, end: 20130102
  5. BLINDED THERAPY [Suspect]
     Indication: COLORECTAL CANCER METASTATIC
     Dosage: UNK
     Route: 042
     Dates: start: 20121017, end: 20130102
  6. TENORMIN [Concomitant]
     Indication: HYPERTENSION
     Dosage: UNK

REACTIONS (1)
  - General physical health deterioration [Not Recovered/Not Resolved]
